FAERS Safety Report 4691555-0 (Version None)
Quarter: 2005Q2

REPORT INFORMATION
  Report Type: 
  Country: None (occurrence: None)
  Receive Date: 20050608
  Receipt Date: 20050202
  Transmission Date: 20051028
  Serious: Yes (Other)
  Sender: FDA-Public Use
  Company Number: 394555

PATIENT
  Age: 16 Year
  Sex: Male
  Weight: 60.3 kg

DRUGS (1)
  1. ACCUTANE [Suspect]
     Dosage: 20 MG 2 PER DAY ORAL
     Route: 048
     Dates: start: 20041025, end: 20050129

REACTIONS (2)
  - DEPRESSION [None]
  - FATIGUE [None]
